FAERS Safety Report 5654423-3 (Version None)
Quarter: 2008Q1

REPORT INFORMATION
  Report Type: 
  Country: None (occurrence: None)
  Receive Date: 20080305
  Receipt Date: 20080228
  Transmission Date: 20080703
  Serious: Yes (Hospitalization)
  Sender: FDA-Public Use
  Company Number: 2007BI021836

PATIENT
  Age: 36 Year
  Sex: Female
  Weight: 90.7194 kg

DRUGS (3)
  1. TYSABRI [Suspect]
     Indication: MULTIPLE SCLEROSIS
     Dosage: 300 MG; QM; IV
     Route: 042
     Dates: start: 20070913, end: 20071011
  2. CYMBALTA [Concomitant]
  3. PROVIGIL [Concomitant]

REACTIONS (16)
  - BLOOD PRESSURE DECREASED [None]
  - CEREBRAL HAEMORRHAGE [None]
  - DRUG HYPERSENSITIVITY [None]
  - FALL [None]
  - HEADACHE [None]
  - HYPOAESTHESIA [None]
  - INAPPROPRIATE DEVICE SIGNAL DETECTION [None]
  - MOVEMENT DISORDER [None]
  - MUSCLE SPASMS [None]
  - PARAESTHESIA [None]
  - PHARYNGOLARYNGEAL PAIN [None]
  - SINUS DISORDER [None]
  - SUBARACHNOID HAEMORRHAGE [None]
  - TINNITUS [None]
  - VISUAL DISTURBANCE [None]
  - VOMITING [None]
